FAERS Safety Report 5811422-6 (Version None)
Quarter: 2008Q3

REPORT INFORMATION
  Report Type: 
  Country: None (occurrence: None)
  Receive Date: 20080716
  Receipt Date: 20080709
  Transmission Date: 20090109
  Serious: Yes (Other)
  Sender: FDA-Public Use
  Company Number: US-JNJFOC-20080702899

PATIENT
  Sex: Female
  Weight: 67.59 kg

DRUGS (2)
  1. LEVAQUIN [Suspect]
     Indication: PNEUMONIA
     Route: 048
  2. TYLENOL W/ CODEINE [Concomitant]
     Indication: PAIN
     Route: 048

REACTIONS (2)
  - JOINT RANGE OF MOTION DECREASED [None]
  - MUSCULOSKELETAL PAIN [None]
